FAERS Safety Report 11814424 (Version 1)
Quarter: 2015Q4

REPORT INFORMATION
  Report Type: Spontaneous
  Country: GB (occurrence: GB)
  Receive Date: 20151209
  Receipt Date: 20151209
  Transmission Date: 20160305
  Serious: Yes (Hospitalization)
  Sender: FDA-Public Use
  Company Number: GB-PFIZER INC-2015421092

PATIENT
  Age: 57 Year
  Sex: Male

DRUGS (10)
  1. LISINOPRIL. [Suspect]
     Active Substance: LISINOPRIL
     Dosage: 40 MG, 1X/DAY
     Route: 048
     Dates: end: 20151109
  2. ALLOPURINOL. [Concomitant]
     Active Substance: ALLOPURINOL
     Dosage: 200 MG, 1X/DAY
  3. ASPIRIN /00002701/ [Concomitant]
     Active Substance: ASPIRIN
     Dosage: 75 MG, 1X/DAY
  4. PARACETAMOL [Concomitant]
     Active Substance: ACETAMINOPHEN
     Dosage: UNK
  5. CHLORAMPHENICOL [Concomitant]
     Active Substance: CHLORAMPHENICOL
     Dosage: 1% APPLY 3 OR 4 TIMES A DAY
     Route: 047
     Dates: start: 20151023
  6. AMLODIPINE BESILATE [Suspect]
     Active Substance: AMLODIPINE BESYLATE
     Dosage: 10 MG, 1X/DAY
     Route: 048
     Dates: end: 20151109
  7. ATORVASTATIN [Concomitant]
     Active Substance: ATORVASTATIN
     Dosage: 80 MG, 1X/DAY AT NIGHT
  8. DOXAZOSIN MESILATE [Suspect]
     Active Substance: DOXAZOSIN MESYLATE
     Dosage: 4 MG, 1X/DAY
     Route: 048
     Dates: end: 20151109
  9. FENOFIBRATE. [Concomitant]
     Active Substance: FENOFIBRATE
     Dosage: 267 MG, 1X/DAY
  10. IBUPROFEN. [Suspect]
     Active Substance: IBUPROFEN
     Dosage: UNK
     Route: 048
     Dates: end: 20151109

REACTIONS (3)
  - Hypotension [Recovering/Resolving]
  - Acute kidney injury [Recovering/Resolving]
  - Syncope [Unknown]

NARRATIVE: CASE EVENT DATE: 20151109
